FAERS Safety Report 13535321 (Version 2)
Quarter: 2017Q2

REPORT INFORMATION
  Report Type: Other
  Country: None (occurrence: US)
  Receive Date: 20170511
  Receipt Date: 20170526
  Transmission Date: 20170830
  Serious: Yes (Other)
  Sender: FDA-Public Use
  Company Number: US-ALKABELLO-2017AA001715

PATIENT
  Age: 42 Year
  Sex: Female

DRUGS (3)
  1. LEVOCETIRIZINE DIHYDROCHLORIDE. [Concomitant]
     Active Substance: LEVOCETIRIZINE DIHYDROCHLORIDE
  2. GRASTEK [Suspect]
     Active Substance: PHLEUM PRATENSE POLLEN
     Route: 060
  3. BEPOTASTINE [Concomitant]
     Active Substance: BEPOTASTINE

REACTIONS (1)
  - Anaphylactic reaction [Recovered/Resolved]
